FAERS Safety Report 7038574-7 (Version None)
Quarter: 2010Q4

REPORT INFORMATION
  Report Type: 
  Country: None (occurrence: None)
  Receive Date: 20101011
  Receipt Date: 20100929
  Transmission Date: 20110411
  Serious: Yes (Other)
  Sender: FDA-Public Use
  Company Number: JP-PFIZER INC-2010124131

PATIENT
  Age: 78 Year
  Sex: Female

DRUGS (2)
  1. SEIBULE [Suspect]
     Dosage: UNK
     Route: 048
     Dates: start: 20091210, end: 20100113
  2. SEIBULE [Suspect]
     Dosage: UNK
     Route: 048
     Dates: start: 20100407, end: 20100420

REACTIONS (1)
  - ALANINE AMINOTRANSFERASE INCREASED [None]
